FAERS Safety Report 17954702 (Version 1)
Quarter: 2020Q2

REPORT INFORMATION
  Report Type: Spontaneous
  Country: US (occurrence: US)
  Receive Date: 20200629
  Receipt Date: 20200629
  Transmission Date: 20200714
  Serious: No
  Sender: FDA-Public Use
  Company Number: US-HORIZON-PRO-0151-2020

PATIENT
  Age: 34 Year
  Sex: Female

DRUGS (2)
  1. GRALISE [Concomitant]
     Active Substance: GABAPENTIN
  2. PROCYSBI [Suspect]
     Active Substance: CYSTEAMINE BITARTRATE
     Indication: AMINO ACID METABOLISM DISORDER
     Dosage: 1200 MG BID
     Route: 048

REACTIONS (1)
  - Malaise [Unknown]
